FAERS Safety Report 5410668-9 (Version None)
Quarter: 2007Q3

REPORT INFORMATION
  Report Type: 
  Country: None (occurrence: None)
  Receive Date: 20070810
  Receipt Date: 20070521
  Transmission Date: 20080115
  Serious: No
  Sender: FDA-Public Use
  Company Number: A0652135A

PATIENT
  Age: 61 Year
  Sex: Female

DRUGS (8)
  1. PAROXETINE [Suspect]
     Indication: DEPRESSION
     Dosage: 20MG PER DAY
     Route: 048
  2. PAXIL [Suspect]
     Indication: DEPRESSION
     Dosage: 20MG PER DAY
     Route: 048
     Dates: start: 20070201, end: 20070301
  3. PAXIL [Suspect]
     Dosage: 20MG PER DAY
     Route: 048
     Dates: start: 19970101
  4. ALLERGY SHOTS [Concomitant]
  5. ALLERGY MEDICATION [Concomitant]
  6. CIPROFLOXACIN [Concomitant]
  7. TETRACYCLINE [Concomitant]
  8. CEPHALEXIN [Concomitant]

REACTIONS (6)
  - ANXIETY [None]
  - DRUG INEFFECTIVE [None]
  - INSOMNIA [None]
  - PSYCHOMOTOR HYPERACTIVITY [None]
  - RASH [None]
  - SEDATION [None]
